FAERS Safety Report 24291788 (Version 2)
Quarter: 2024Q3

REPORT INFORMATION
  Report Type: Spontaneous
  Country: GB (occurrence: GB)
  Receive Date: 20240906
  Receipt Date: 20240910
  Transmission Date: 20241017
  Serious: Yes (Life-Threatening, Hospitalization, Other)
  Sender: PFIZER
  Company Number: GB-PFIZER INC-044-9033-M0100006

PATIENT
  Age: 57 Year
  Sex: Male

DRUGS (8)
  1. DILTIAZEM HYDROCHLORIDE [Suspect]
     Active Substance: DILTIAZEM HYDROCHLORIDE
     Dosage: 60 MG, 1X/DAY
  2. DILTIAZEM HYDROCHLORIDE [Suspect]
     Active Substance: DILTIAZEM HYDROCHLORIDE
     Dosage: 960 MG, 1X/DAY
     Route: 048
  3. NIFEDIPINE [Interacting]
     Active Substance: NIFEDIPINE
     Dosage: 120 MG
     Route: 048
  4. BISOPROLOL FUMARATE [Interacting]
     Active Substance: BISOPROLOL FUMARATE
     Dosage: 40 MG
     Route: 048
  5. ASPIRIN [Concomitant]
     Active Substance: ASPIRIN
     Dosage: UNK
     Route: 048
  6. NICORANDIL [Concomitant]
     Active Substance: NICORANDIL
     Dosage: UNK
     Route: 048
  7. SIMVASTATIN [Concomitant]
     Active Substance: SIMVASTATIN
     Dosage: UNK
     Route: 048
  8. FLUOXETINE HYDROCHLORIDE [Concomitant]
     Active Substance: FLUOXETINE HYDROCHLORIDE
     Dosage: UNK
     Route: 048

REACTIONS (7)
  - Drug interaction [Recovered/Resolved]
  - Loss of consciousness [Recovered/Resolved]
  - Bradycardia [Recovered/Resolved]
  - Renal impairment [Recovered/Resolved]
  - Hypotension [Recovered/Resolved]
  - Extrasystoles [Recovered/Resolved]
  - Intentional overdose [Recovered/Resolved]
